FAERS Safety Report 25169229 (Version 1)
Quarter: 2025Q2

REPORT INFORMATION
  Report Type: Spontaneous
  Country: SI (occurrence: SI)
  Receive Date: 20250407
  Receipt Date: 20250407
  Transmission Date: 20250717
  Serious: Yes (Death, Other)
  Sender: MERCK SHARP AND DOHME
  Company Number: SI-009507513-2273518

PATIENT
  Age: 70 Year
  Sex: Male

DRUGS (4)
  1. PEMBROLIZUMAB [Suspect]
     Active Substance: PEMBROLIZUMAB
     Indication: Lung adenocarcinoma
     Route: 065
     Dates: start: 201803, end: 2018
  2. CARBOPLATIN [Suspect]
     Active Substance: CARBOPLATIN
     Indication: Lung adenocarcinoma
     Route: 065
     Dates: start: 201803, end: 2018
  3. ATEZOLIZUMAB [Suspect]
     Active Substance: ATEZOLIZUMAB
     Indication: Lung adenocarcinoma
     Route: 065
     Dates: start: 201804
  4. FLUOROURACIL [Suspect]
     Active Substance: FLUOROURACIL
     Indication: Lung adenocarcinoma
     Route: 065
     Dates: start: 202203

REACTIONS (4)
  - Malignant neoplasm progression [Fatal]
  - Acute myocardial infarction [Unknown]
  - Therapy partial responder [Unknown]
  - Spinal stenosis [Unknown]

NARRATIVE: CASE EVENT DATE: 20180301
